FAERS Safety Report 20674062 (Version 1)
Quarter: 2022Q2

REPORT INFORMATION
  Report Type: Spontaneous
  Country: GB (occurrence: GB)
  Receive Date: 20220405
  Receipt Date: 20220405
  Transmission Date: 20220720
  Serious: Yes (Hospitalization)
  Sender: FDA-Public Use
  Company Number: GB-ORGANON-O2204GBR000083

PATIENT
  Age: 39 Year
  Sex: Female

DRUGS (6)
  1. MONTELUKAST SODIUM [Suspect]
     Active Substance: MONTELUKAST SODIUM
     Indication: Asthma
     Dosage: 10 MILLIGRAM, ONCE DAILY
     Route: 048
  2. SYMBICORT [Suspect]
     Active Substance: BUDESONIDE\FORMOTEROL FUMARATE DIHYDRATE
     Indication: Asthma
     Dosage: TWO PUFFS, TWICE DAILY
  3. SPIRIVA [Suspect]
     Active Substance: TIOTROPIUM BROMIDE MONOHYDRATE
     Indication: Asthma
     Dosage: 18 MICROGRAM, ONCE DAILY
  4. THEOPHYLLINE [Suspect]
     Active Substance: THEOPHYLLINE
     Indication: Asthma
     Dosage: 250 MILLIGRAM, TWICE DAILY
  5. AZITHROMYCIN [Suspect]
     Active Substance: AZITHROMYCIN
     Indication: Asthma
     Dosage: 500 MILLIGRAM ON MONDAYS, WEDNESDAYS AND FRIDAYS
  6. PREDNISOLONE [Suspect]
     Active Substance: PREDNISOLONE
     Indication: Asthma
     Dosage: UNK

REACTIONS (1)
  - Treatment noncompliance [Unknown]
